FAERS Safety Report 4401030-6 (Version None)
Quarter: 2004Q3

REPORT INFORMATION
  Report Type: 
  Country: None (occurrence: None)
  Receive Date: 20040907
  Receipt Date: 20030926
  Transmission Date: 20050211
  Serious: No
  Sender: FDA-Public Use
  Company Number: US-BRISTOL-MYERS SQUIBB COMPANY-12395513

PATIENT
  Age: 53 Year
  Sex: Female
  Weight: 54 kg

DRUGS (4)
  1. COUMADIN [Suspect]
     Indication: DEEP VEIN THROMBOSIS
     Route: 048
     Dates: start: 20030620, end: 20030626
  2. DICYCLOMINE [Concomitant]
  3. PREDNISONE [Concomitant]
     Dates: start: 19870101
  4. HEPARIN [Concomitant]
     Dosage: ^ACCORDING TO BW^
     Dates: start: 20030619

REACTIONS (1)
  - INSOMNIA [None]
